FAERS Safety Report 6723213-2 (Version None)
Quarter: 2010Q2

REPORT INFORMATION
  Report Type: 
  Country: None (occurrence: None)
  Receive Date: 20100513
  Receipt Date: 20100505
  Transmission Date: 20101027
  Serious: Yes (Other)
  Sender: FDA-Public Use
  Company Number: DE-JNJFOC-20100404258

PATIENT
  Sex: Female
  Weight: 60 kg

DRUGS (2)
  1. TOPAMAX [Suspect]
     Indication: GRAND MAL CONVULSION
     Route: 048
     Dates: start: 20071201
  2. ERGENYL [Concomitant]
     Indication: GRAND MAL CONVULSION
     Route: 065

REACTIONS (1)
  - IMMUNODEFICIENCY [None]
